FAERS Safety Report 5467337-9 (Version None)
Quarter: 2007Q3

REPORT INFORMATION
  Report Type: 
  Country: None (occurrence: None)
  Receive Date: 20070925
  Receipt Date: 20070913
  Transmission Date: 20080115
  Serious: Yes (Other)
  Sender: FDA-Public Use
  Company Number: GB-PFIZER INC-2007077021

PATIENT
  Age: 34 Year
  Sex: Female

DRUGS (5)
  1. CHAMPIX [Suspect]
     Route: 048
  2. BECLOMETHASONE DIPROPIONATE [Concomitant]
     Route: 055
  3. METHADONE HCL [Concomitant]
     Route: 048
  4. PROPRANOLOL [Concomitant]
     Route: 048
  5. SALBUTAMOL [Concomitant]
     Route: 055

REACTIONS (2)
  - BURNING SENSATION [None]
  - ORAL MUCOSAL BLISTERING [None]
